FAERS Safety Report 5807197-7 (Version None)
Quarter: 2008Q3

REPORT INFORMATION
  Report Type: 
  Country: None (occurrence: None)
  Receive Date: 20080711
  Receipt Date: 20080704
  Transmission Date: 20090109
  Serious: Yes (Hospitalization)
  Sender: FDA-Public Use
  Company Number: B0524243A

PATIENT
  Age: 55 Year
  Sex: Female

DRUGS (6)
  1. AUGMENTIN '125' [Suspect]
     Indication: PHARYNGITIS
     Route: 048
     Dates: start: 20080513, end: 20080516
  2. AMOXICILLIN + CLAVULANATE POTASSIUM [Suspect]
     Indication: PHARYNGITIS
     Dates: start: 20080512, end: 20080512
  3. ACETAMINOPHEN [Concomitant]
     Dates: start: 20080512, end: 20080516
  4. DEXTROMETHORPHAN [Concomitant]
     Indication: COUGH
     Dates: start: 20080512, end: 20080516
  5. DIAZEPAM [Concomitant]
  6. HALOPERIDOL [Concomitant]

REACTIONS (3)
  - HEPATITIS CHOLESTATIC [None]
  - JAUNDICE [None]
  - PRURITUS [None]
